FAERS Safety Report 5519914-4 (Version None)
Quarter: 2007Q4

REPORT INFORMATION
  Report Type: 
  Country: None (occurrence: None)
  Receive Date: 20071116
  Receipt Date: 20071106
  Transmission Date: 20080405
  Serious: Yes (Other)
  Sender: FDA-Public Use
  Company Number: PHBS2007TW16993

PATIENT

DRUGS (1)
  1. AREDIA [Suspect]
     Indication: MULTIPLE MYELOMA
     Dosage: 4 MG/MONTH
     Dates: end: 20070101

REACTIONS (2)
  - OSTEONECROSIS [None]
  - TOOTHACHE [None]
